FAERS Safety Report 13344939 (Version 1)
Quarter: 2017Q1

REPORT INFORMATION
  Report Type: Report from Study
  Country: FR (occurrence: FR)
  Receive Date: 20170317
  Receipt Date: 20170317
  Transmission Date: 20170428
  Serious: Yes (Hospitalization)
  Sender: FDA-Public Use
  Company Number: FR-AMGEN-FRACT2017038056

PATIENT
  Age: 37 Year
  Sex: Female

DRUGS (5)
  1. 5-FLUOROURACIL [Concomitant]
     Active Substance: FLUOROURACIL
     Indication: BREAST CANCER
     Dosage: 820 MG, UNK
     Route: 065
     Dates: start: 20110228, end: 20110502
  2. PANITUMUMAB [Suspect]
     Active Substance: PANITUMUMAB
     Indication: BREAST CANCER
     Dosage: 580 MG, UNK
     Route: 065
     Dates: start: 20110228
  3. DOCETAXEL. [Suspect]
     Active Substance: DOCETAXEL
     Indication: BREAST CANCER
     Dosage: 160 MG, UNK
     Route: 065
     Dates: start: 20110523, end: 20110523
  4. CYCLOPHOSPHAMIDE. [Concomitant]
     Active Substance: CYCLOPHOSPHAMIDE
     Indication: BREAST CANCER
     Dosage: 820 MG, UNK
     Route: 065
     Dates: start: 20110228, end: 20110502
  5. EPIRUBICIN [Concomitant]
     Active Substance: EPIRUBICIN
     Indication: BREAST CANCER
     Dosage: 160 MG, UNK
     Route: 065
     Dates: start: 20110228, end: 20110502

REACTIONS (3)
  - Rash vesicular [Recovering/Resolving]
  - Ulcerative keratitis [Not Recovered/Not Resolved]
  - Erythema [Not Recovered/Not Resolved]
